FAERS Safety Report 24351961 (Version 1)
Quarter: 2024Q3

REPORT INFORMATION
  Report Type: Report from Study
  Country: EG (occurrence: EG)
  Receive Date: 20240923
  Receipt Date: 20240923
  Transmission Date: 20241017
  Serious: No
  Sender: ROCHE
  Company Number: EG-ROCHE-3015652

PATIENT
  Age: 55 Year
  Sex: Female

DRUGS (12)
  1. HERCEPTIN [Suspect]
     Active Substance: TRASTUZUMAB
     Indication: Breast cancer metastatic
     Route: 041
     Dates: start: 20181104, end: 20210106
  2. XELODA [Suspect]
     Active Substance: CAPECITABINE
     Indication: Breast cancer metastatic
     Dosage: TWICE DAILY FOR 2 WEEKS EVERY 3 WEEKS
     Route: 048
     Dates: start: 20210127, end: 20220116
  3. XELODA [Suspect]
     Active Substance: CAPECITABINE
     Dosage: TWICE DAILY EVERY TWO WEEKS
     Route: 048
     Dates: start: 20211219, end: 20220703
  4. XELODA [Suspect]
     Active Substance: CAPECITABINE
     Dosage: TWICE A DAY FOR 14 DAYS EVERY 21 WEEKS
     Route: 048
     Dates: start: 20220808, end: 20220911
  5. TAXOL [Suspect]
     Active Substance: PACLITAXEL
     Indication: Breast cancer metastatic
     Dosage: PLANNED NUMBER OF CYCLES COMPLETED? FREQUENCY TEXT:6 CYCLES
     Route: 042
     Dates: start: 20181104, end: 20190414
  6. TYKERB [Suspect]
     Active Substance: LAPATINIB DITOSYLATE
     Indication: Breast cancer metastatic
     Route: 048
     Dates: start: 20210127
  7. GABAPENTIN [Concomitant]
     Active Substance: GABAPENTIN
     Indication: Neuropathy peripheral
     Route: 048
     Dates: start: 20210704
  8. ACETAMINOPHEN [Concomitant]
     Active Substance: ACETAMINOPHEN
     Indication: Neuropathy peripheral
     Route: 048
     Dates: start: 20210704
  9. URSODIOL [Concomitant]
     Active Substance: URSODIOL
     Indication: Alanine aminotransferase increased
     Route: 048
     Dates: start: 20210825, end: 20210901
  10. DIETARY SUPPLEMENT\HERBALS\MILK THISTLE [Concomitant]
     Active Substance: MILK THISTLE
     Indication: Alanine aminotransferase increased
     Route: 048
     Dates: start: 20210825, end: 20210901
  11. DIETARY SUPPLEMENT\HERBALS\MILK THISTLE [Concomitant]
     Active Substance: MILK THISTLE
     Route: 048
     Dates: start: 20210905, end: 20211005
  12. CELECOXIB [Concomitant]
     Active Substance: CELECOXIB
     Route: 048
     Dates: start: 20210725, end: 20221110

REACTIONS (1)
  - Palmar-plantar erythrodysaesthesia syndrome [Unknown]

NARRATIVE: CASE EVENT DATE: 20211219
